FAERS Safety Report 21434345 (Version 1)
Quarter: 2022Q4

REPORT INFORMATION
  Report Type: Spontaneous
  Country: ES (occurrence: ES)
  Receive Date: 20221010
  Receipt Date: 20221010
  Transmission Date: 20230112
  Serious: Yes (Life-Threatening, Other)
  Sender: FDA-Public Use
  Company Number: None

PATIENT
  Age: 57 Year
  Sex: Female
  Weight: 85 kg

DRUGS (1)
  1. ADALIMUMAB [Suspect]
     Active Substance: ADALIMUMAB
     Indication: Colitis ulcerative
     Dosage: 160MG WEEK 0, 80MG WEEK 2 AND MAINTENANCE 40MG/14 D
     Route: 058
     Dates: start: 20220518, end: 20220803

REACTIONS (7)
  - Hypokalaemia [Recovered/Resolved]
  - Hypertensive crisis [Recovered/Resolved]
  - Headache [Recovered/Resolved]
  - Vertigo [Recovered/Resolved]
  - Chest pain [Recovered/Resolved]
  - Bacterial abdominal infection [Recovered/Resolved]
  - Eosinophilia [Recovering/Resolving]

NARRATIVE: CASE EVENT DATE: 20220520
